FAERS Safety Report 18271950 (Version 1)
Quarter: 2020Q3

REPORT INFORMATION
  Report Type: Spontaneous
  Country: US (occurrence: US)
  Receive Date: 20200521
  Receipt Date: 20200521
  Transmission Date: 20201103
  Serious: No
  Sender: FDA-Public Use
  Company Number: None

PATIENT
  Age: 5 Decade
  Sex: Male

DRUGS (4)
  1. HYDROXYCHLOROQUINE [Suspect]
     Active Substance: HYDROXYCHLOROQUINE
     Indication: COVID-19
     Dates: start: 2020, end: 2020
  2. AZITHROMYCIN ANHYDROUS. [Suspect]
     Active Substance: AZITHROMYCIN ANHYDROUS
     Indication: COVID-19
     Dates: start: 2020, end: 2020
  3. TOCILIZUMAB. [Suspect]
     Active Substance: TOCILIZUMAB
     Indication: COVID-19
     Dosage: ?          OTHER DOSE:ONE DOSE;?
     Dates: start: 2020, end: 2020
  4. IVERMECTIN. [Suspect]
     Active Substance: IVERMECTIN
     Indication: COVID-19
     Dosage: ?          OTHER FREQUENCY:ONE DOSE;?
     Dates: start: 2020, end: 2020

REACTIONS (2)
  - Fibrin D dimer increased [None]
  - Condition aggravated [None]
